FAERS Safety Report 6997490-7 (Version None)
Quarter: 2010Q3

REPORT INFORMATION
  Report Type: 
  Country: None (occurrence: None)
  Receive Date: 20100918
  Receipt Date: 20091019
  Transmission Date: 20110219
  Serious: No
  Sender: FDA-Public Use
  Company Number: US-WYE-H11742909

PATIENT
  Sex: Male
  Weight: 95.34 kg

DRUGS (3)
  1. PRISTIQ [Suspect]
     Indication: ANXIETY
     Route: 048
     Dates: start: 20091001
  2. CRESTOR [Concomitant]
  3. ACCUPRIL [Concomitant]

REACTIONS (3)
  - DECREASED APPETITE [None]
  - HYPERHIDROSIS [None]
  - LIBIDO DECREASED [None]
